FAERS Safety Report 11605500 (Version 2)
Quarter: 2016Q3

REPORT INFORMATION
  Report Type: Report from Study
  Country: US (occurrence: US)
  Receive Date: 20151007
  Receipt Date: 20160923
  Transmission Date: 20161109
  Serious: Yes (Hospitalization, Other)
  Sender: FDA-Public Use
  Company Number: US-BAXTER-2015BAX053267

PATIENT
  Age: 17 Year
  Sex: Male
  Weight: 62 kg

DRUGS (24)
  1. CYTARABINE. [Suspect]
     Active Substance: CYTARABINE
     Dosage: COURSE A (CYCLE=21DAYS): CYCLE 1, 3, OVER 1-30 MINS EVERY 12 HOURS ON DAYS 4, 5
     Route: 042
  2. VP-16 [Suspect]
     Active Substance: ETOPOSIDE
     Dosage: COURSE A (CYCLES=21DAYS), CYCLE 5 OVER 2 HOURS ON DAYS 4
     Route: 042
     Dates: start: 20141016
  3. DOXORUBICIN HYDROCHLORIDE. [Suspect]
     Active Substance: DOXORUBICIN HYDROCHLORIDE
     Indication: ANAPLASTIC LARGE CELL LYMPHOMA T- AND NULL-CELL TYPES
     Dosage: COURSE B (CYCLES=21DAYS), CYCLE 2, 4 AND 6, OVER 1-15 MINS ON DAYS 4, 5
     Route: 042
  4. DEXAMETHASONE. [Suspect]
     Active Substance: DEXAMETHASONE
     Indication: ANAPLASTIC LARGE CELL LYMPHOMA T- AND NULL-CELL TYPES
     Dosage: PROPHASE (CYCLE=5 DAYS), ON DAYS 1 AND 2
     Route: 048
     Dates: start: 20140708
  5. IFOSFAMIDE FOR INJECTION [Suspect]
     Active Substance: IFOSFAMIDE
     Indication: ANAPLASTIC LARGE CELL LYMPHOMA T- AND NULL-CELL TYPES
     Dosage: COURSE A (CYCLE=21DAYS), CYCLE 1 AND 3, OVER 60 MINS ON DAYS 1-5
     Route: 042
  6. CRIZOTINIB [Suspect]
     Active Substance: CRIZOTINIB
     Dosage: COURSE B (CYCLES=21DAYS), CYCLES 2, 4 AND 6, ON DAYS 1-21
     Route: 048
  7. METHOTREXATE. [Suspect]
     Active Substance: METHOTREXATE
     Dosage: COURSE A (CYCLES=21DAYS), CYCLE 5, OVER 3 HOURS ON DAY1
     Route: 042
     Dates: start: 20141013
  8. IFOSFAMIDE FOR INJECTION [Suspect]
     Active Substance: IFOSFAMIDE
     Dosage: COURSE A (CYCLES=21DAYS), CYCLE 5, OVER 60 MINS ON DAYS 1-5
     Route: 042
     Dates: start: 20141013
  9. METHOTREXATE. [Suspect]
     Active Substance: METHOTREXATE
     Indication: ANAPLASTIC LARGE CELL LYMPHOMA T- AND NULL-CELL TYPES
     Dosage: PROPHASE (CYCLE=5 DAYS), 7.5-12 MG, ON DAY 1, AGE BASED DOSING
     Route: 037
     Dates: start: 20140708
  10. METHOTREXATE. [Suspect]
     Active Substance: METHOTREXATE
     Dosage: COURSE A (CYCLES=21DAYS), CYCLE 1 AND 3, OVER 3 HOURS ON DAY1
     Route: 042
  11. CYTARABINE. [Suspect]
     Active Substance: CYTARABINE
     Indication: ANAPLASTIC LARGE CELL LYMPHOMA T- AND NULL-CELL TYPES
     Dosage: PROPHASE (CYCLES=5DAYS), 15-24 MG, ON DAY 1, AGE BASED DOSING
     Route: 037
     Dates: start: 20140708
  12. HYDROCORTISONE. [Suspect]
     Active Substance: HYDROCORTISONE
     Indication: ANAPLASTIC LARGE CELL LYMPHOMA T- AND NULL-CELL TYPES
     Dosage: PROPHASE (CYCLES=5DAYS), 7.5-12 MG, ON DAY 1, AGE BASED DOSING
     Route: 037
     Dates: start: 20140708, end: 20140708
  13. NEULASTA [Suspect]
     Active Substance: PEGFILGRASTIM
     Indication: PRODUCT USED FOR UNKNOWN INDICATION
     Route: 065
  14. CRIZOTINIB [Suspect]
     Active Substance: CRIZOTINIB
     Indication: ANAPLASTIC LARGE CELL LYMPHOMA T- AND NULL-CELL TYPES
     Dosage: COURSE A (CYCLES=21 DAYS): CYCLES 1 AND 3, ON DAYS 1-21
     Route: 048
  15. CRIZOTINIB [Suspect]
     Active Substance: CRIZOTINIB
     Dosage: COURSE A (CYCLES=21 DAYS): CYCLES 5, ON DAYS 1-21
     Route: 048
     Dates: start: 20141013
  16. CYTARABINE. [Suspect]
     Active Substance: CYTARABINE
     Dosage: COURSE A (CYCLES=21DAYS), CYCLE 5, DAY 4, OVER 1-30 MINS
     Route: 042
     Dates: start: 20141016
  17. VP-16 [Suspect]
     Active Substance: ETOPOSIDE
     Indication: ANAPLASTIC LARGE CELL LYMPHOMA T- AND NULL-CELL TYPES
     Dosage: COURSE A (CYCLES=21DAYS), CYCLE 1, 3 OVER 2 HOURS ON DAYS 4, 5
     Route: 042
  18. METHOTREXATE. [Suspect]
     Active Substance: METHOTREXATE
     Dosage: COURSE B (CYCLES=21DAYS), CYCLE 2, 4 AND 6, OVER 3 HOURS ON DAY1
     Route: 042
  19. DEXAMETHASONE. [Suspect]
     Active Substance: DEXAMETHASONE
     Dosage: PROPHASE (CYCLE=5 DAYS), ON DAYS 3 AND 5
     Route: 048
  20. DEXAMETHASONE. [Suspect]
     Active Substance: DEXAMETHASONE
     Dosage: COURSE A (CYCLES=21DAYS), CYCLE 1 AND 3, ON DAYS 1-5
     Route: 048
  21. DEXAMETHASONE. [Suspect]
     Active Substance: DEXAMETHASONE
     Dosage: COURSE B (CYCLES=21 DAYS), CYCLE 2, 4 AND 6, ON DAYS 1-5
     Route: 048
  22. DEXAMETHASONE. [Suspect]
     Active Substance: DEXAMETHASONE
     Dosage: COURSE A (CYCLES=21DAYS), CYCLE 5, ON DAYS 1-5
     Route: 048
     Dates: start: 20141013
  23. CYCLOPHOSPHAMIDE FOR INJECTION, USP [Suspect]
     Active Substance: CYCLOPHOSPHAMIDE
     Indication: ANAPLASTIC LARGE CELL LYMPHOMA T- AND NULL-CELL TYPES
     Dosage: PROPHASE (CYCLES=5DAYS), OVER 15-30 MINUTES, ON DAY 1 AND 2
     Route: 042
     Dates: start: 20140708
  24. CYCLOPHOSPHAMIDE FOR INJECTION, USP [Suspect]
     Active Substance: CYCLOPHOSPHAMIDE
     Dosage: COURSE B (CYCLES=21DAYS), CYCLES 2, 4 AND 6, OVER 15-30 MINS ON DAYS 1-5
     Route: 042

REACTIONS (2)
  - Hypertension [Recovered/Resolved]
  - Back pain [Recovered/Resolved]

NARRATIVE: CASE EVENT DATE: 20141016
